FAERS Safety Report 7760086-3 (Version None)
Quarter: 2011Q3

REPORT INFORMATION
  Report Type: 
  Country: None (occurrence: None)
  Receive Date: 20110919
  Receipt Date: 20110913
  Transmission Date: 20111222
  Serious: Yes (Hospitalization)
  Sender: FDA-Public Use
  Company Number: UA-PFIZER INC-2011038102

PATIENT
  Age: 63 Year
  Sex: Female
  Weight: 90 kg

DRUGS (12)
  1. DICLOFENAC SODIUM [Suspect]
     Indication: RHEUMATOID ARTHRITIS
     Dosage: 100 MG, 1X/DAY
     Route: 048
     Dates: start: 20100601, end: 20110218
  2. FOLIC ACID [Concomitant]
     Indication: RHEUMATOID ARTHRITIS
     Dosage: 2.5 MG, 4X/WEEK
     Route: 048
     Dates: start: 20100904
  3. BLINDED PLACEBO [Suspect]
     Indication: RHEUMATOID ARTHRITIS
     Dosage: CP-690,550/PLACEBO, 2X/DAY
     Route: 048
     Dates: start: 20100902
  4. BLINDED CP-690,550 [Suspect]
     Indication: RHEUMATOID ARTHRITIS
     Dosage: CP-690,550/PLACEBO, 2X/DAY
     Route: 048
     Dates: start: 20100902
  5. BLINDED NO SUBJECT DRUG [Suspect]
     Indication: RHEUMATOID ARTHRITIS
     Dosage: CP-690,550/PLACEBO, 2X/DAY
     Route: 048
     Dates: start: 20100902
  6. METHYLPREDNISOLONE [Suspect]
     Indication: RHEUMATOID ARTHRITIS
     Dosage: 6 MG, 1X/DAY
     Route: 048
     Dates: start: 20101126
  7. METHOTREXATE [Suspect]
     Indication: RHEUMATOID ARTHRITIS
     Dosage: CP-690,550/PLACEBO, 2X/DAY
     Route: 048
     Dates: start: 20100902
  8. BLINDED CP-690,550 [Suspect]
     Dosage: METHOTREXATE/PLACEBO, 1X/WEEK
     Route: 048
     Dates: start: 20100902
  9. BLINDED PLACEBO [Suspect]
     Dosage: METHOTREXATE/PLACEBO, 1X/WEEK
     Route: 048
     Dates: start: 20100902
  10. BLINDED METHOTREXATE SODIUM [Suspect]
     Dosage: METHOTREXATE/PLACEBO, 1X/WEEK
     Route: 048
     Dates: start: 20100902
  11. BLINDED NO SUBJECT DRUG [Suspect]
     Dosage: METHOTREXATE/PLACEBO, 1X/WEEK
     Route: 048
     Dates: start: 20100902
  12. ATORVASTATIN [Concomitant]
     Indication: DYSLIPIDAEMIA
     Dosage: 20 MG, 1X/DAY
     Route: 048
     Dates: start: 20101214

REACTIONS (9)
  - DYSPNOEA [None]
  - LEFT VENTRICULAR DYSFUNCTION [None]
  - ANGINA PECTORIS [None]
  - ELECTROCARDIOGRAM ST SEGMENT DEPRESSION [None]
  - LEFT VENTRICULAR HYPERTROPHY [None]
  - HYPERTENSIVE HEART DISEASE [None]
  - OSTEOCHONDROSIS [None]
  - AORTIC DISORDER [None]
  - GENERAL PHYSICAL HEALTH DETERIORATION [None]
